FAERS Safety Report 6299647-X (Version None)
Quarter: 2009Q3

REPORT INFORMATION
  Report Type: 
  Country: None (occurrence: None)
  Receive Date: 20090805
  Receipt Date: 20090805
  Transmission Date: 20100115
  Serious: Yes (Hospitalization)
  Sender: FDA-Public Use
  Company Number: None

PATIENT
  Age: 48 Year
  Sex: Male
  Weight: 97 kg

DRUGS (1)
  1. LORTAB [Suspect]
     Indication: PAIN IN EXTREMITY
     Dosage: 1-2 TABLETS EVERY 6 HOURS PRN PO
     Route: 048
     Dates: start: 20090421, end: 20090423

REACTIONS (2)
  - HYPERHIDROSIS [None]
  - PRURITUS [None]
